FAERS Safety Report 10994273 (Version 1)
Quarter: 2015Q2

REPORT INFORMATION
  Report Type: Spontaneous
  Country: GB (occurrence: GB)
  Receive Date: 20150407
  Receipt Date: 20150407
  Transmission Date: 20150821
  Serious: Yes (Hospitalization)
  Sender: FDA-Public Use
  Company Number: GB-WATSON-2015-07147

PATIENT
  Age: 34 Year
  Sex: Female
  Weight: 50.8 kg

DRUGS (1)
  1. VANCOMYCIN (UNKNOWN) [Suspect]
     Active Substance: VANCOMYCIN
     Indication: PROPHYLAXIS
     Dosage: 1 G, UNKNOWN
     Route: 042
     Dates: start: 20150311, end: 20150312

REACTIONS (12)
  - Generalised tonic-clonic seizure [Recovered/Resolved]
  - Loss of consciousness [Recovered/Resolved]
  - Limb discomfort [Recovered/Resolved]
  - Muscle rigidity [Recovered/Resolved]
  - Tongue biting [Recovered/Resolved]
  - Foaming at mouth [Recovered/Resolved]
  - Dyspnoea [Recovered/Resolved]
  - Confusional state [Recovered/Resolved]
  - Dyskinesia [Recovered/Resolved]
  - Agitation [Recovered/Resolved]
  - Paraesthesia [Recovered/Resolved]
  - Muscle twitching [Recovered/Resolved]

NARRATIVE: CASE EVENT DATE: 20150311
